FAERS Safety Report 22009119 (Version 1)
Quarter: 2023Q1

REPORT INFORMATION
  Report Type: Spontaneous
  Country: JP (occurrence: JP)
  Receive Date: 20230220
  Receipt Date: 20230220
  Transmission Date: 20230417
  Serious: Yes (Other)
  Sender: FDA-Public Use
  Company Number: JP-ONO-2023JP003787

PATIENT
  Age: 67 Year
  Sex: Male

DRUGS (3)
  1. OPDIVO [Suspect]
     Active Substance: NIVOLUMAB
     Indication: Head and neck cancer
     Dosage: UNK
     Route: 041
     Dates: start: 202107
  2. PACLITAXEL [Suspect]
     Active Substance: PACLITAXEL
     Indication: Head and neck cancer
     Dosage: UNK
     Dates: start: 202109
  3. CETUXIMAB [Suspect]
     Active Substance: CETUXIMAB
     Indication: Head and neck cancer
     Dosage: UNK
     Dates: start: 202109

REACTIONS (9)
  - Vascular device infection [Unknown]
  - Disseminated intravascular coagulation [Unknown]
  - Cardiac failure [Unknown]
  - Acute kidney injury [Unknown]
  - Haemophagocytic lymphohistiocytosis [Recovering/Resolving]
  - Procalcitonin increased [Unknown]
  - Pyrexia [Recovering/Resolving]
  - Rash [Unknown]
  - C-reactive protein increased [Recovering/Resolving]

NARRATIVE: CASE EVENT DATE: 20210101
